FAERS Safety Report 4304929-4 (Version None)
Quarter: 2004Q1

REPORT INFORMATION
  Report Type: 
  Country: None (occurrence: None)
  Receive Date: 20040226
  Receipt Date: 20040115
  Transmission Date: 20041129
  Serious: Yes (Other)
  Sender: FDA-Public Use
  Company Number: US-GLAXOSMITHKLINE-A0493452A

PATIENT
  Age: 44 Year
  Sex: Female

DRUGS (3)
  1. WELLBUTRIN [Suspect]
     Indication: DEPRESSION
     Dosage: 150MG SEE DOSAGE TEXT
     Route: 048
     Dates: end: 20040110
  2. PAXIL [Concomitant]
     Dosage: 80MG PER DAY
  3. PROZAC [Concomitant]
     Dosage: 80MG PER DAY

REACTIONS (1)
  - CONVULSION [None]
